FAERS Safety Report 8417328-0 (Version None)
Quarter: 2012Q2

REPORT INFORMATION
  Report Type: 
  Country: None (occurrence: None)
  Receive Date: 20120606
  Receipt Date: 20120522
  Transmission Date: 20120825
  Serious: No
  Sender: FDA-Public Use
  Company Number: US-BAYER-2012-050940

PATIENT
  Sex: Female

DRUGS (1)
  1. SOTALOL HYDROCHLORIDE [Suspect]

REACTIONS (1)
  - ATRIAL FIBRILLATION [None]
